FAERS Safety Report 8859796 (Version 1)
Quarter: 2012Q4

REPORT INFORMATION
  Report Type: 
  Country: US (occurrence: US)
  Receive Date: 20121025
  Receipt Date: 20121025
  Transmission Date: 20130627
  Serious: No
  Sender: FDA-Public Use
  Company Number: US-ABBOTT-12P-163-0986139-00

PATIENT
  Sex: Female
  Weight: 71.73 kg

DRUGS (3)
  1. LUPRON DEPOT [Suspect]
     Indication: UTERINE LEIOMYOMA
     Route: 030
     Dates: start: 20120301, end: 20120803
  2. NORETHINDRONE [Concomitant]
     Indication: UTERINE LEIOMYOMA
  3. ALBUTEROL MDI [Concomitant]
     Indication: PRODUCT USED FOR UNKNOWN INDICATION

REACTIONS (2)
  - Uterine leiomyoma [Not Recovered/Not Resolved]
  - Haemorrhage [Not Recovered/Not Resolved]
